FAERS Safety Report 12334400 (Version 2)
Quarter: 2016Q2

REPORT INFORMATION
  Report Type: Report from Study
  Country: MX (occurrence: MX)
  Receive Date: 20160504
  Receipt Date: 20160524
  Transmission Date: 20160815
  Serious: Yes (Other)
  Sender: FDA-Public Use
  Company Number: PHHY2016MX059540

PATIENT
  Sex: Male

DRUGS (1)
  1. RITALIN LA [Suspect]
     Active Substance: METHYLPHENIDATE HYDROCHLORIDE
     Indication: ATTENTION DEFICIT/HYPERACTIVITY DISORDER
     Dosage: 1 DF (40 MG), (SINCE A YEAR AGO)
     Route: 065
     Dates: start: 2015

REACTIONS (6)
  - Rickettsiosis [Unknown]
  - Attention deficit/hyperactivity disorder [Unknown]
  - Decreased immune responsiveness [Unknown]
  - Bronchitis [Unknown]
  - Cerebral disorder [Unknown]
  - Influenza [Unknown]
